FAERS Safety Report 7383773-8 (Version None)
Quarter: 2011Q1

REPORT INFORMATION
  Report Type: 
  Country: None (occurrence: None)
  Receive Date: 20110328
  Receipt Date: 20110328
  Transmission Date: 20110831
  Serious: No
  Sender: FDA-Public Use
  Company Number: None

PATIENT
  Sex: Female

DRUGS (1)
  1. GABAPENTIN [Suspect]
     Dosage: 600MG TWICE DAILY ORAL
     Route: 048
     Dates: start: 20110301

REACTIONS (2)
  - DRUG INEFFECTIVE [None]
  - TABLET PHYSICAL ISSUE [None]
